FAERS Safety Report 8393588-X (Version None)
Quarter: 2012Q2

REPORT INFORMATION
  Report Type: 
  Country: None (occurrence: None)
  Receive Date: 20120530
  Receipt Date: 20120521
  Transmission Date: 20120825
  Serious: Yes (Life-Threatening, Other)
  Sender: FDA-Public Use
  Company Number: JP-BRISTOL-MYERS SQUIBB COMPANY-16355497

PATIENT
  Age: 87 Year
  Sex: Female

DRUGS (18)
  1. ATENOLOL [Concomitant]
     Route: 048
  2. BUP-4 [Concomitant]
     Route: 048
  3. METFORMIN HCL [Suspect]
     Dosage: UNK-16JAN2012 16-JAN-2012-STOPED
     Route: 048
  4. VERAPAMIL HCL [Concomitant]
     Route: 048
  5. DILTIAZEM HCL [Concomitant]
     Route: 048
  6. SITAGLIPTIN PHOSPHATE [Concomitant]
     Route: 048
  7. EVISTA [Concomitant]
     Route: 048
  8. CALBLOCK [Concomitant]
     Dosage: 16MG/DAY
     Route: 048
  9. CRESTOR [Concomitant]
     Route: 048
  10. MECOBALAMIN [Concomitant]
     Route: 048
  11. AVAPRO [Suspect]
     Indication: HYPERTENSION
     Route: 048
     Dates: start: 20120112, end: 20120116
  12. NITRODERM [Concomitant]
  13. ASPIRIN [Concomitant]
     Route: 048
  14. HYZAAR [Suspect]
     Dosage: PREMINENT
     Route: 048
  15. LYRICA [Concomitant]
     Route: 048
  16. LOXOPROFEN [Concomitant]
     Route: 048
  17. AMARYL [Concomitant]
     Route: 048
  18. MERISLON [Concomitant]
     Route: 048
     Dates: start: 20120112, end: 20120116

REACTIONS (10)
  - SICK SINUS SYNDROME [None]
  - RENAL ARTERY STENOSIS [None]
  - RENAL CYST [None]
  - OVERDOSE [None]
  - HYPERKALAEMIA [None]
  - DEMENTIA [None]
  - BLOOD PRESSURE DECREASED [None]
  - LOSS OF CONSCIOUSNESS [None]
  - URINARY TRACT INFECTION [None]
  - BLOOD LACTIC ACID INCREASED [None]
